FAERS Safety Report 7860588-5 (Version None)
Quarter: 2011Q4

REPORT INFORMATION
  Report Type: 
  Country: None (occurrence: None)
  Receive Date: 20111027
  Receipt Date: 20111020
  Transmission Date: 20120403
  Serious: Yes (Death)
  Sender: FDA-Public Use
  Company Number: IT-JNJFOC-20111009002

PATIENT
  Age: 35 Year
  Sex: Male

DRUGS (1)
  1. INVEGA [Suspect]
     Indication: PRODUCT USED FOR UNKNOWN INDICATION
     Route: 048
     Dates: start: 20110524, end: 20110914

REACTIONS (1)
  - COMPLETED SUICIDE [None]
